FAERS Safety Report 22653477 (Version 2)
Quarter: 2025Q2

REPORT INFORMATION
  Report Type: Spontaneous
  Country: AU (occurrence: AU)
  Receive Date: 20230629
  Receipt Date: 20250624
  Transmission Date: 20250717
  Serious: Yes (Death, Other)
  Sender: ORGANON
  Company Number: AU-ORGANON-O2306AUS003327

PATIENT
  Age: 67 Year
  Sex: Male

DRUGS (6)
  1. MIRTAZAPINE [Suspect]
     Active Substance: MIRTAZAPINE
  2. ALCOHOL [Suspect]
     Active Substance: ALCOHOL
  3. QUETIAPINE [Suspect]
     Active Substance: QUETIAPINE
  4. VENLAFAXINE [Suspect]
     Active Substance: VENLAFAXINE HYDROCHLORIDE
  5. AMLODIPINE [Concomitant]
     Active Substance: AMLODIPINE BESYLATE
  6. CLONAZEPAM [Concomitant]
     Active Substance: CLONAZEPAM

REACTIONS (3)
  - Alcohol poisoning [Unknown]
  - Toxicity to various agents [Fatal]
  - Overdose [Unknown]
